FAERS Safety Report 5668720-9 (Version None)
Quarter: 2008Q1

REPORT INFORMATION
  Report Type: 
  Country: None (occurrence: None)
  Receive Date: 20080311
  Receipt Date: 20080311
  Transmission Date: 20080703
  Serious: Yes (Hospitalization)
  Sender: FDA-Public Use
  Company Number: None

PATIENT
  Age: 89 Year
  Sex: Male

DRUGS (2)
  1. AZITHROMYCIN [Suspect]
     Indication: PNEUMONIA
     Dosage: 500MG EVERY DAY PO
     Route: 048
     Dates: start: 20070524, end: 20070606
  2. CEFPODOXIME PROXETIL [Suspect]
     Dosage: 200MG BID PO
     Route: 048
     Dates: start: 20070524, end: 20070606

REACTIONS (3)
  - ASTHENIA [None]
  - CLOSTRIDIUM DIFFICILE COLITIS [None]
  - DEHYDRATION [None]
